FAERS Safety Report 11449201 (Version 5)
Quarter: 2016Q1

REPORT INFORMATION
  Report Type: Spontaneous
  Country: US (occurrence: US)
  Receive Date: 20150902
  Receipt Date: 20160304
  Transmission Date: 20160525
  Serious: Yes (Hospitalization, Disabling, Other)
  Sender: FDA-Public Use
  Company Number: US-009507513-1509USA000428

PATIENT
  Sex: Female

DRUGS (3)
  1. ALENDRONATE SODIUM. [Suspect]
     Active Substance: ALENDRONATE SODIUM
     Indication: OSTEOPOROSIS
     Dosage: 70 MG, QW
     Route: 048
     Dates: start: 20080222, end: 20121008
  2. FOSAMAX [Suspect]
     Active Substance: ALENDRONATE SODIUM
     Indication: OSTEOPOROSIS
     Dosage: 10 MG, QD
     Route: 048
     Dates: start: 20010227, end: 20010601
  3. FOSAMAX [Suspect]
     Active Substance: ALENDRONATE SODIUM
     Dosage: 70 MG, QW
     Route: 048
     Dates: start: 20010605, end: 20080222

REACTIONS (43)
  - Multiple drug therapy [Unknown]
  - Intervertebral disc degeneration [Unknown]
  - Left ventricular hypertrophy [Unknown]
  - Bronchitis [Unknown]
  - Laceration [Unknown]
  - Blood cholesterol increased [Unknown]
  - Insomnia [Unknown]
  - Hysterectomy [Unknown]
  - Nerve injury [Unknown]
  - Back pain [Not Recovered/Not Resolved]
  - Oral surgery [Unknown]
  - Headache [Unknown]
  - Fall [Unknown]
  - Shoulder arthroplasty [Unknown]
  - Chest pain [Unknown]
  - Claustrophobia [Unknown]
  - Gastrooesophageal reflux disease [Unknown]
  - Urinary tract infection [Unknown]
  - Paraesthesia [Unknown]
  - Hypertension [Unknown]
  - Carotid bruit [Unknown]
  - Arthritis [Unknown]
  - Surgery [Unknown]
  - Depression [Unknown]
  - Anxiety [Unknown]
  - Chronic obstructive pulmonary disease [Unknown]
  - Mitral valve incompetence [Unknown]
  - Periodontal operation [Unknown]
  - Endodontic procedure [Unknown]
  - Muscle spasms [Unknown]
  - Syncope [Unknown]
  - Reflux laryngitis [Unknown]
  - Sleep apnoea syndrome [Unknown]
  - Gingivectomy [Unknown]
  - Asthma [Unknown]
  - Bone density decreased [Unknown]
  - Pyrexia [Unknown]
  - Urinary tract disorder [Unknown]
  - Tonsillectomy [Unknown]
  - Seizure [Unknown]
  - Femur fracture [Recovering/Resolving]
  - Dental implantation [Unknown]
  - Multiple allergies [Unknown]

NARRATIVE: CASE EVENT DATE: 20020115
